FAERS Safety Report 8211490-0 (Version None)
Quarter: 2012Q1

REPORT INFORMATION
  Report Type: 
  Country: None (occurrence: None)
  Receive Date: 20120315
  Receipt Date: 20120312
  Transmission Date: 20120608
  Serious: Yes (Other)
  Sender: FDA-Public Use
  Company Number: US-PFIZER INC-2012020701

PATIENT
  Sex: Female

DRUGS (2)
  1. EFFEXOR XR [Suspect]
     Indication: MULTIPLE SCLEROSIS
     Dosage: UNK
     Dates: start: 20060101
  2. EFFEXOR XR [Suspect]
     Indication: DEPRESSION

REACTIONS (3)
  - ANXIETY [None]
  - DRUG DEPENDENCE [None]
  - STRESS [None]
